FAERS Safety Report 24528490 (Version 5)
Quarter: 2025Q4

REPORT INFORMATION
  Report Type: Report from Study
  Country: US (occurrence: US)
  Receive Date: 20241021
  Receipt Date: 20251002
  Transmission Date: 20260118
  Serious: Yes (Other)
  Sender: PFIZER
  Company Number: US-PFIZER INC-PV202400133250

PATIENT
  Age: 30 Year
  Sex: Female
  Weight: 118.37 kg

DRUGS (1)
  1. NURTEC ODT [Suspect]
     Active Substance: RIMEGEPANT SULFATE
     Indication: Migraine
     Dosage: 75 MG, AS NEEDED
     Route: 048
     Dates: start: 202303

REACTIONS (2)
  - Maternal exposure during pregnancy [Recovered/Resolved]
  - Uterine contractions abnormal [Recovered/Resolved]

NARRATIVE: CASE EVENT DATE: 20231122
